FAERS Safety Report 25613775 (Version 2)
Quarter: 2025Q3

REPORT INFORMATION
  Report Type: Spontaneous
  Country: US (occurrence: US)
  Receive Date: 20250728
  Receipt Date: 20250814
  Transmission Date: 20251020
  Serious: No
  Sender: MYLAN
  Company Number: US-MYLANLABS-2025M1059345

PATIENT
  Age: 70 Year
  Sex: Female
  Weight: 88.45 kg

DRUGS (4)
  1. ESTRADIOL [Suspect]
     Active Substance: ESTRADIOL
     Indication: Urinary tract infection
  2. ESTRADIOL [Suspect]
     Active Substance: ESTRADIOL
     Indication: Genitourinary syndrome of menopause
     Route: 067
  3. ESTRADIOL [Suspect]
     Active Substance: ESTRADIOL
     Route: 067
  4. ESTRADIOL [Suspect]
     Active Substance: ESTRADIOL

REACTIONS (2)
  - Off label use [Unknown]
  - Product packaging quantity issue [Unknown]

NARRATIVE: CASE EVENT DATE: 20250511
